FAERS Safety Report 23837290 (Version 1)
Quarter: 2024Q2

REPORT INFORMATION
  Report Type: Spontaneous
  Country: CA (occurrence: CA)
  Receive Date: 20240509
  Receipt Date: 20240509
  Transmission Date: 20240715
  Serious: Yes (Hospitalization)
  Sender: FDA-Public Use
  Company Number: CA-TEVA-VS-3196390

PATIENT
  Age: 59 Year
  Sex: Female
  Weight: 78 kg

DRUGS (1)
  1. CAPECITABINE [Suspect]
     Active Substance: CAPECITABINE
     Indication: Product used for unknown indication
     Route: 048

REACTIONS (3)
  - Arteriospasm coronary [Recovered/Resolved]
  - Pericarditis [Recovered/Resolved]
  - Viral pericarditis [Recovered/Resolved]
